FAERS Safety Report 4446155-4 (Version None)
Quarter: 2004Q3

REPORT INFORMATION
  Report Type: 
  Country: None (occurrence: None)
  Receive Date: 20040907
  Receipt Date: 20040503
  Transmission Date: 20050211
  Serious: Yes (Death, Life-Threatening, Hospitalization)
  Sender: FDA-Public Use
  Company Number: DE-MERCK-0405DEU00010

PATIENT
  Age: 76 Year
  Sex: Male
  Weight: 76 kg

DRUGS (8)
  1. ACETAMINOPHEN [Concomitant]
     Route: 048
  2. BISOPROLOL [Concomitant]
     Indication: HYPERTENSIVE HEART DISEASE
     Route: 065
  3. HYDROCHLOROTHIAZIDE [Concomitant]
     Route: 065
  4. LISINOPRIL [Concomitant]
     Route: 065
  5. METHOTREXATE [Concomitant]
     Route: 065
  6. OMEPRAZOLE [Concomitant]
     Route: 048
  7. VIOXX [Suspect]
     Indication: POLYARTHRITIS
     Route: 048
     Dates: start: 20040201, end: 20040401
  8. VIOXX [Suspect]
     Route: 048
     Dates: start: 20040401, end: 20040428

REACTIONS (4)
  - BLOOD CREATININE INCREASED [None]
  - DEATH [None]
  - OEDEMA [None]
  - RENAL FAILURE ACUTE [None]
